FAERS Safety Report 9641192 (Version 1)
Quarter: 2013Q4

REPORT INFORMATION
  Report Type: Spontaneous
  Country: DE (occurrence: DE)
  Receive Date: 20131023
  Receipt Date: 20131023
  Transmission Date: 20140711
  Serious: Yes (Disabling, Congenital Anomaly)
  Sender: FDA-Public Use
  Company Number: DE-PFIZER INC-2013299697

PATIENT
  Age: 1 Day
  Sex: Female
  Weight: 1.95 kg

DRUGS (12)
  1. FUROSEMIDE [Suspect]
     Indication: GLOMERULONEPHRITIS
     Dosage: 80 MG/D AS NEEDED; 40-80 MG/D
     Route: 064
  2. RAMIPRIL [Suspect]
     Indication: GLOMERULONEPHRITIS
     Dosage: 2.5 MG, DAILY
     Route: 064
  3. PROGRAF [Suspect]
     Indication: NEPHROTIC SYNDROME
     Dosage: 1-2 MG PER DAY
     Route: 064
  4. PREDNISOLONE [Suspect]
     Indication: IMMUNE THROMBOCYTOPENIC PURPURA
     Dosage: 5 MG UNTIL WEEK 5+1 THEN PAUSE; 100 MG FOR 3 DAYS, FROM THEN 40 MG-20MG/D FROM WEEK 8 10 MG/D
     Route: 064
  5. PREDNISOLONE [Suspect]
     Route: 064
  6. PREDNISOLONE [Suspect]
     Route: 064
  7. PREDNISOLONE [Suspect]
     Route: 064
  8. TORASEMIDE [Suspect]
     Indication: GLOMERULONEPHRITIS
     Dosage: UNK
     Route: 064
  9. FLUVASTATIN [Suspect]
     Indication: HYPERCHOLESTEROLAEMIA
     Dosage: 20 MG, DAILY
     Route: 064
  10. OMEPRAZOL [Concomitant]
     Indication: GASTRITIS PROPHYLAXIS
     Dosage: 40 MG, DAILY
     Route: 064
  11. IDEOS [Concomitant]
     Indication: OSTEOPOROSIS PROPHYLAXIS
     Dosage: UNK UG, 2X/DAY
     Route: 064
  12. FOLIC ACID [Concomitant]
     Indication: PROPHYLAXIS OF NEURAL TUBE DEFECT
     Dosage: 5 MG, 1X/DAY
     Route: 064

REACTIONS (8)
  - Maternal exposure during pregnancy [Unknown]
  - Talipes [Unknown]
  - Cleft palate [Unknown]
  - Patent ductus arteriosus [Unknown]
  - Dysmorphism [Unknown]
  - Atrial septal defect [Unknown]
  - Premature baby [Recovering/Resolving]
  - Limb reduction defect [Not Recovered/Not Resolved]
